FAERS Safety Report 10550102 (Version 4)
Quarter: 2014Q4

REPORT INFORMATION
  Report Type: Spontaneous
  Country: IT (occurrence: IT)
  Receive Date: 20141028
  Receipt Date: 20141117
  Transmission Date: 20150529
  Serious: Yes (Death, Hospitalization, Other)
  Sender: FDA-Public Use
  Company Number: IT-BAXTER-2014BAX030273

PATIENT
  Age: 54 Year
  Sex: Male

DRUGS (10)
  1. HOLOXAN [Suspect]
     Active Substance: IFOSFAMIDE
     Route: 042
     Dates: start: 20140522, end: 20140525
  2. GEMSOL [Suspect]
     Active Substance: GEMCITABINE HYDROCHLORIDE
     Indication: HODGKIN^S DISEASE
     Route: 042
     Dates: start: 20140412, end: 20140415
  3. URBASON [Suspect]
     Active Substance: METHYLPREDNISOLONE
     Indication: HODGKIN^S DISEASE
     Route: 065
     Dates: start: 20140412, end: 20140415
  4. GEMSOL [Suspect]
     Active Substance: GEMCITABINE HYDROCHLORIDE
     Route: 042
     Dates: start: 20140522, end: 20140525
  5. VINORELBINA SANDOZ [Suspect]
     Active Substance: VINORELBINE TARTRATE
     Indication: HODGKIN^S DISEASE
     Route: 042
     Dates: start: 20140412, end: 20140415
  6. UROMITEXAN 400 MG/ 4ML [Suspect]
     Active Substance: MESNA
     Route: 065
     Dates: start: 20140522, end: 20140525
  7. HOLOXAN [Suspect]
     Active Substance: IFOSFAMIDE
     Indication: HODGKIN^S DISEASE
     Route: 042
     Dates: start: 20140412, end: 20140415
  8. VINORELBINA SANDOZ [Suspect]
     Active Substance: VINORELBINE TARTRATE
     Route: 042
     Dates: start: 20140522, end: 20140525
  9. URBASON [Suspect]
     Active Substance: METHYLPREDNISOLONE
     Route: 065
     Dates: start: 20140522, end: 20140525
  10. UROMITEXAN 400 MG/ 4ML [Suspect]
     Active Substance: MESNA
     Indication: HODGKIN^S DISEASE
     Route: 065
     Dates: start: 20140412, end: 20140415

REACTIONS (5)
  - Death [Fatal]
  - Escherichia bacteraemia [Unknown]
  - Staphylococcal bacteraemia [Recovered/Resolved]
  - Systemic candida [Unknown]
  - Stevens-Johnson syndrome [Recovered/Resolved]

NARRATIVE: CASE EVENT DATE: 20140423
